FAERS Safety Report 11106659 (Version 1)
Quarter: 2015Q2

REPORT INFORMATION
  Report Type: Spontaneous
  Country: US (occurrence: None)
  Receive Date: 20150511
  Receipt Date: 20150511
  Transmission Date: 20150821
  Serious: Yes (Other)
  Sender: FDA-Public Use
  Company Number: None

PATIENT
  Age: 59 Year
  Sex: Female
  Weight: 66.23 kg

DRUGS (9)
  1. MULTIVITAMIN [Concomitant]
     Active Substance: VITAMINS
  2. GLUCOSAMINE CONDROITAN [Concomitant]
  3. FLAX SEEDS [Concomitant]
     Active Substance: FLAX SEEDS
  4. LYPOIC ACID [Concomitant]
  5. VENLAFAXINE HCL [Suspect]
     Active Substance: VENLAFAXINE HYDROCHLORIDE
     Route: 048
  6. CALCIUM-D [Concomitant]
  7. ZOLPIDEM [Concomitant]
     Active Substance: ZOLPIDEM\ZOLPIDEM TARTRATE
  8. CO-Q 10 [Concomitant]
  9. CHIA SEEDS [Concomitant]
     Active Substance: OMEGA-3 FATTY ACIDS

REACTIONS (2)
  - Glycosylated haemoglobin increased [None]
  - Gastrointestinal pain [None]

NARRATIVE: CASE EVENT DATE: 20150501
